FAERS Safety Report 14633260 (Version 2)
Quarter: 2018Q2

REPORT INFORMATION
  Report Type: Not Available
  Country: US (occurrence: US)
  Receive Date: 20180313
  Receipt Date: 20180404
  Transmission Date: 20180711
  Serious: Yes (Hospitalization)
  Sender: FDA-Public Use
  Company Number: US-NEUROCRINE BIOSCIENCES INC.-2018NBI00674

PATIENT
  Age: 49 Year
  Sex: Female

DRUGS (4)
  1. TRIHEXYPHENIDYL [Concomitant]
     Active Substance: TRIHEXYPHENIDYL
     Route: 048
  2. DEPAKOTE ER [Concomitant]
     Active Substance: DIVALPROEX SODIUM
     Route: 048
  3. INGREZZA [Suspect]
     Active Substance: VALBENAZINE
     Indication: TARDIVE DYSKINESIA
     Route: 048
     Dates: start: 201802
  4. REXULTI [Concomitant]
     Active Substance: BREXPIPRAZOLE
     Dates: start: 20180227

REACTIONS (3)
  - Blood pressure increased [Unknown]
  - Accidental overdose [Unknown]
  - Tremor [Unknown]

NARRATIVE: CASE EVENT DATE: 201802
